FAERS Safety Report 13752859 (Version 1)
Quarter: 2017Q3

REPORT INFORMATION
  Report Type: Spontaneous
  Country: US (occurrence: US)
  Receive Date: 20170713
  Receipt Date: 20170713
  Transmission Date: 20171127
  Serious: No
  Sender: FDA-Public Use
  Company Number: None

PATIENT
  Sex: Male

DRUGS (1)
  1. ACTOS [Suspect]
     Active Substance: PIOGLITAZONE HYDROCHLORIDE
     Indication: DIABETES MELLITUS
     Route: 048
     Dates: start: 20150812, end: 20170701

REACTIONS (12)
  - Balance disorder [None]
  - Oropharyngeal pain [None]
  - Weight increased [None]
  - Glaucoma [None]
  - Nausea [None]
  - Dizziness [None]
  - Dysphonia [None]
  - Dysuria [None]
  - Vision blurred [None]
  - Swelling face [None]
  - Joint swelling [None]
  - Abdominal discomfort [None]

NARRATIVE: CASE EVENT DATE: 20170701
